FAERS Safety Report 24582807 (Version 3)
Quarter: 2025Q3

REPORT INFORMATION
  Report Type: Spontaneous
  Country: CN (occurrence: CN)
  Receive Date: 20241106
  Receipt Date: 20250829
  Transmission Date: 20251021
  Serious: Yes (Hospitalization)
  Sender: BEIGENE
  Company Number: CN-ROCHE-3514998

PATIENT
  Age: 67 Year
  Weight: 58.5 kg

DRUGS (29)
  1. BRUKINSA [Suspect]
     Active Substance: ZANUBRUTINIB
     Indication: Diffuse large B-cell lymphoma
  2. METHOTREXATE [Suspect]
     Active Substance: METHOTREXATE
     Indication: Diffuse large B-cell lymphoma
  3. CYCLOPHOSPHAMIDE [Suspect]
     Active Substance: CYCLOPHOSPHAMIDE
     Indication: Diffuse large B-cell lymphoma
  4. RITUXIMAB [Suspect]
     Active Substance: RITUXIMAB
     Indication: Diffuse large B-cell lymphoma
  5. POLATUZUMAB VEDOTIN [Suspect]
     Active Substance: POLATUZUMAB VEDOTIN
     Indication: Diffuse large B-cell lymphoma
  6. DOXORUBICIN [Suspect]
     Active Substance: DOXORUBICIN
     Indication: Diffuse large B-cell lymphoma
  7. FOSAPREPITANT DIMEGLUMINE [Concomitant]
     Active Substance: FOSAPREPITANT DIMEGLUMINE
  8. CEFUROXIME SODIUM [Concomitant]
     Active Substance: CEFUROXIME SODIUM
  9. TROPISETRON [Concomitant]
     Active Substance: TROPISETRON
  10. GENTAMICIN [Concomitant]
     Active Substance: GENTAMICIN
  11. GRANULOCYTE COLONY-STIMULATING FACTOR NOS [Concomitant]
     Active Substance: GRANULOCYTE COLONY-STIMULATING FACTOR NOS
  12. FUROSEMIDE [Concomitant]
     Active Substance: FUROSEMIDE
  13. INSULIN NOS [Concomitant]
     Active Substance: INSULIN NOS
  14. EFBEMALENOGRASTIM ALFA [Concomitant]
     Active Substance: EFBEMALENOGRASTIM ALFA
  15. METOCLOPRAMIDE [Concomitant]
     Active Substance: METOCLOPRAMIDE
  16. POTASSIUM CHLORIDE [Concomitant]
     Active Substance: POTASSIUM CHLORIDE
  17. LEUCOVORIN CALCIUM [Concomitant]
     Active Substance: LEUCOVORIN CALCIUM
  18. CIMETIDINE [Concomitant]
     Active Substance: CIMETIDINE
  19. GLUTATHIONE [Concomitant]
     Active Substance: GLUTATHIONE
  20. ESTAZOLAM [Concomitant]
     Active Substance: ESTAZOLAM
  21. HYDROCORTISONE SODIUM SUCCINATE [Concomitant]
     Active Substance: HYDROCORTISONE SODIUM SUCCINATE
  22. MANNITOL [Concomitant]
     Active Substance: MANNITOL
  23. DEXAMETHASONE SODIUM PHOSPHATE [Concomitant]
     Active Substance: DEXAMETHASONE SODIUM PHOSPHATE
  24. DIPHENHYDRAMINE [Concomitant]
     Active Substance: DIPHENHYDRAMINE
  25. LIDOCAINE HYDROCHLORIDE [Concomitant]
     Active Substance: LIDOCAINE HYDROCHLORIDE
  26. SPIRONOLACTONE [Concomitant]
     Active Substance: SPIRONOLACTONE
  27. AMLODIPINE [Concomitant]
     Active Substance: AMLODIPINE BESYLATE
  28. MOXIFLOXACIN [Concomitant]
     Active Substance: MOXIFLOXACIN
  29. ROSUVASTATIN CALCIUM [Concomitant]
     Active Substance: ROSUVASTATIN CALCIUM

REACTIONS (11)
  - Platelet count decreased [Unknown]
  - Hypokalaemia [Unknown]
  - Neutrophil count decreased [Unknown]
  - Blood cholinesterase decreased [Unknown]
  - Protein total decreased [Unknown]
  - Lymphocyte count decreased [Unknown]
  - Hypoalbuminaemia [Unknown]
  - White blood cell count decreased [Unknown]
  - Anaemia [Unknown]
  - Hypophosphataemia [Unknown]
  - Off label use [Unknown]
